FAERS Safety Report 18260881 (Version 1)
Quarter: 2020Q3

REPORT INFORMATION
  Report Type: Report from Study
  Country: None (occurrence: CO)
  Receive Date: 20200914
  Receipt Date: 20200914
  Transmission Date: 20201103
  Serious: Yes (Hospitalization)
  Sender: FDA-Public Use
  Company Number: CO-ABBVIE-20K-036-3564103-00

PATIENT
  Age: 1 Month
  Sex: Female
  Weight: 6 kg

DRUGS (2)
  1. SYNAGIS [Suspect]
     Active Substance: PALIVIZUMAB
     Indication: HEART DISEASE CONGENITAL
     Route: 030
     Dates: start: 20200628
  2. FUROSEMIDE. [Concomitant]
     Active Substance: FUROSEMIDE
     Indication: HEART DISEASE CONGENITAL
     Route: 048
     Dates: start: 2020

REACTIONS (2)
  - Influenza [Not Recovered/Not Resolved]
  - Hyperventilation [Not Recovered/Not Resolved]

NARRATIVE: CASE EVENT DATE: 202007
